FAERS Safety Report 9309795 (Version 1)
Quarter: 2013Q2

REPORT INFORMATION
  Report Type: Spontaneous
  Country: US (occurrence: US)
  Receive Date: 20130525
  Receipt Date: 20130525
  Transmission Date: 20140414
  Serious: No
  Sender: FDA-Public Use
  Company Number: US-BRISTOL-MYERS SQUIBB COMPANY-18587527

PATIENT
  Age: 65 Year
  Sex: Male
  Weight: 83.9 kg

DRUGS (1)
  1. BYDUREON 2MG VIAL + SYRINGE [Suspect]
     Indication: TYPE 2 DIABETES MELLITUS
     Route: 058

REACTIONS (2)
  - Underdose [Recovered/Resolved]
  - Injection site nodule [Recovering/Resolving]
